FAERS Safety Report 6840267-3 (Version None)
Quarter: 2010Q2

REPORT INFORMATION
  Report Type: 
  Country: None (occurrence: None)
  Receive Date: 20100629
  Receipt Date: 20100426
  Transmission Date: 20101027
  Serious: No
  Sender: FDA-Public Use
  Company Number: US-WYE-H14825910

PATIENT
  Age: 55 Year
  Sex: Female
  Weight: 62.2 kg

DRUGS (5)
  1. PRITSTIQ (DESVENLAFAXINE SUCCINATE MONOHYDRATE, TABLET, EXTENDED RELEA [Suspect]
     Indication: DEPRESSION
     Dosage: 50 MG, FREQUENCY NOT SPECIFIED
     Dates: start: 20100309, end: 20100424
  2. XANAX [Concomitant]
  3. VALIUM [Concomitant]
  4. TRAZODONE HCL [Concomitant]
  5. SYNTHROID [Concomitant]

REACTIONS (2)
  - DRUG WITHDRAWAL SYNDROME [None]
  - NONSPECIFIC REACTION [None]
